FAERS Safety Report 5030262-1 (Version None)
Quarter: 2006Q2

REPORT INFORMATION
  Report Type: 
  Country: None (occurrence: None)
  Receive Date: 20060614
  Receipt Date: 20060530
  Transmission Date: 20061013
  Serious: Yes (Hospitalization)
  Sender: FDA-Public Use
  Company Number: 2006BI007990

PATIENT
  Sex: 0

DRUGS (6)
  1. ZEVALIN [Suspect]
     Indication: MANTLE CELL LYMPHOMA
     Dosage: IV
     Route: 042
  2. RITUXIMAB [Concomitant]
  3. CARMUSTINE [Concomitant]
  4. CYTARABINE [Concomitant]
  5. MELPHALAN [Concomitant]
  6. ETOPOSIDE [Concomitant]

REACTIONS (1)
  - ANASTOMOTIC COMPLICATION [None]
